FAERS Safety Report 11255043 (Version 2)
Quarter: 2015Q4

REPORT INFORMATION
  Report Type: Report from Study
  Country: ES (occurrence: ES)
  Receive Date: 20150709
  Receipt Date: 20151203
  Transmission Date: 20160304
  Serious: Yes (Death, Other)
  Sender: FDA-Public Use
  Company Number: ES-CELGENE-ESP-2015070530

PATIENT
  Age: 72 Year
  Sex: Female

DRUGS (1)
  1. AZACITIDINE. [Suspect]
     Active Substance: AZACITIDINE
     Indication: MYELODYSPLASTIC SYNDROME
     Route: 065
     Dates: start: 20130429, end: 20130825

REACTIONS (1)
  - Extranodal marginal zone B-cell lymphoma (MALT type) [Fatal]

NARRATIVE: CASE EVENT DATE: 20141022
